FAERS Safety Report 8165326-7 (Version None)
Quarter: 2012Q1

REPORT INFORMATION
  Report Type: 
  Country: None (occurrence: None)
  Receive Date: 20120223
  Receipt Date: 20120223
  Transmission Date: 20120608
  Serious: Yes (Hospitalization)
  Sender: FDA-Public Use
  Company Number: None

PATIENT
  Sex: Female

DRUGS (2)
  1. MEANINGFUL BEAUTY FIRMING CHEST CREME, GUTHY RENKER [Suspect]
     Dosage: 2-3 TIMES A WEEK
  2. MEANINGFUL BEAUTY CLEANSING MASQUE, GUTHY RENKER [Suspect]
     Dosage: 2 TIMES A WEEK

REACTIONS (2)
  - CHEMICAL INJURY [None]
  - PAIN [None]
